FAERS Safety Report 19181903 (Version 11)
Quarter: 2025Q3

REPORT INFORMATION
  Report Type: Report from Study
  Country: CA (occurrence: CA)
  Receive Date: 20210426
  Receipt Date: 20250919
  Transmission Date: 20251021
  Serious: Yes (Other)
  Sender: TAKEDA
  Company Number: CA-TAKEDA-2020TUS035595

PATIENT
  Age: 67 Year
  Sex: Female

DRUGS (25)
  1. VEDOLIZUMAB [Suspect]
     Active Substance: VEDOLIZUMAB
     Indication: Crohn^s disease
  2. VEDOLIZUMAB [Suspect]
     Active Substance: VEDOLIZUMAB
  3. VEDOLIZUMAB [Suspect]
     Active Substance: VEDOLIZUMAB
  4. VEDOLIZUMAB [Suspect]
     Active Substance: VEDOLIZUMAB
  5. VEDOLIZUMAB [Suspect]
     Active Substance: VEDOLIZUMAB
  6. VEDOLIZUMAB [Suspect]
     Active Substance: VEDOLIZUMAB
  7. VEDOLIZUMAB [Suspect]
     Active Substance: VEDOLIZUMAB
  8. VEDOLIZUMAB [Suspect]
     Active Substance: VEDOLIZUMAB
  9. VEDOLIZUMAB [Suspect]
     Active Substance: VEDOLIZUMAB
  10. VEDOLIZUMAB [Suspect]
     Active Substance: VEDOLIZUMAB
  11. VEDOLIZUMAB [Suspect]
     Active Substance: VEDOLIZUMAB
  12. VEDOLIZUMAB [Suspect]
     Active Substance: VEDOLIZUMAB
  13. VEDOLIZUMAB [Suspect]
     Active Substance: VEDOLIZUMAB
  14. VEDOLIZUMAB [Suspect]
     Active Substance: VEDOLIZUMAB
  15. VAGIFEM [Concomitant]
     Active Substance: ESTRADIOL
     Indication: Vulvovaginal dryness
  16. ADVAIR HFA [Concomitant]
     Active Substance: FLUTICASONE PROPIONATE\SALMETEROL XINAFOATE
  17. OMNARIS [Concomitant]
     Active Substance: CICLESONIDE
     Indication: Hypersensitivity
  18. INDAPAMIDE\PERINDOPRIL [Concomitant]
     Active Substance: INDAPAMIDE\PERINDOPRIL
  19. ASPIRIN [Concomitant]
     Active Substance: ASPIRIN
  20. Proctol [Concomitant]
  21. GAVISCON [Concomitant]
     Active Substance: ALUMINUM HYDROXIDE\MAGNESIUM CARBONATE
  22. NEXIUM [Concomitant]
     Active Substance: ESOMEPRAZOLE MAGNESIUM
     Dosage: 20 MILLIGRAM, QD
  23. FERAMAX [Concomitant]
     Active Substance: IRON\POLYSACCHARIDES
     Dosage: 150 MILLIGRAM, QOD
  24. VENTOLIN [Concomitant]
     Active Substance: ALBUTEROL SULFATE
  25. BREO ELLIPTA [Concomitant]
     Active Substance: FLUTICASONE FUROATE\VILANTEROL TRIFENATATE

REACTIONS (12)
  - Lower respiratory tract infection [Unknown]
  - Crohn^s disease [Recovered/Resolved]
  - Pneumonia [Recovered/Resolved]
  - Gastrointestinal inflammation [Not Recovered/Not Resolved]
  - Asthma [Unknown]
  - Dyschezia [Unknown]
  - Haemoglobin decreased [Unknown]
  - Chronic obstructive pulmonary disease [Unknown]
  - Abnormal faeces [Unknown]
  - Nematodiasis [Unknown]
  - Urinary tract infection [Unknown]
  - COVID-19 [Recovered/Resolved]

NARRATIVE: CASE EVENT DATE: 20210502
